FAERS Safety Report 12526306 (Version 1)
Quarter: 2016Q3

REPORT INFORMATION
  Report Type: Spontaneous
  Country: US (occurrence: US)
  Receive Date: 20160705
  Receipt Date: 20160705
  Transmission Date: 20161109
  Serious: No
  Sender: FDA-Public Use
  Company Number: US-PFIZER INC-2016322300

PATIENT
  Age: 70 Year
  Sex: Male
  Weight: 43.9 kg

DRUGS (1)
  1. METHOTREXATE SODIUM. [Suspect]
     Active Substance: METHOTREXATE SODIUM
     Indication: ARTHRITIS
     Dosage: 15 MG, UNK ((6 PILLS ON FRIDAYS)
     Dates: start: 201603, end: 20160527

REACTIONS (5)
  - Libido decreased [Unknown]
  - Fatigue [Unknown]
  - Intentional product misuse [Unknown]
  - Drug ineffective [Unknown]
  - Asthenia [Unknown]
